FAERS Safety Report 4454399-0 (Version None)
Quarter: 2004Q3

REPORT INFORMATION
  Report Type: 
  Country: None (occurrence: None)
  Receive Date: 20040921
  Receipt Date: 20040913
  Transmission Date: 20050211
  Serious: Yes (Other)
  Sender: FDA-Public Use
  Company Number: US-JNJFOC-20040904059

PATIENT
  Sex: Male
  Weight: 113.4 kg

DRUGS (7)
  1. REMICADE [Suspect]
     Route: 042
     Dates: start: 20020501
  2. REMICADE [Suspect]
     Indication: RHEUMATOID ARTHRITIS
     Route: 042
     Dates: start: 20020501
  3. METHOTREXATE [Concomitant]
  4. PREDNISONE [Concomitant]
  5. FOLIC ACID [Concomitant]
  6. OMAPRAZOLE [Concomitant]
  7. Z [Concomitant]

REACTIONS (3)
  - INFUSION RELATED REACTION [None]
  - NAUSEA [None]
  - PROSTATE CANCER [None]
